FAERS Safety Report 4730673-5 (Version None)
Quarter: 2005Q3

REPORT INFORMATION
  Report Type: 
  Country: None (occurrence: None)
  Receive Date: 20050725
  Receipt Date: 20050301
  Transmission Date: 20060218
  Serious: No
  Sender: FDA-Public Use
  Company Number: USA050391999

PATIENT
  Age: 56 Year
  Sex: Male
  Weight: 105 kg

DRUGS (4)
  1. STRATTERA [Suspect]
     Indication: ATTENTION DEFICIT/HYPERACTIVITY DISORDER
     Dosage: 40 MG
     Dates: start: 20050301
  2. ATENOLOL [Concomitant]
  3. TRIAMTERENE AND HYDROCHLOROTHIAZIDE [Concomitant]
  4. ASPIRIN [Concomitant]

REACTIONS (5)
  - DRY MOUTH [None]
  - DYSURIA [None]
  - FEELING ABNORMAL [None]
  - LETHARGY [None]
  - SOMNOLENCE [None]
